FAERS Safety Report 24873021 (Version 2)
Quarter: 2025Q1

REPORT INFORMATION
  Report Type: Spontaneous
  Country: PT (occurrence: PT)
  Receive Date: 20250122
  Receipt Date: 20250326
  Transmission Date: 20250409
  Serious: Yes (Other)
  Sender: MYLAN
  Company Number: PT-ViiV Healthcare-PT2025ViiV Healthcare001177

PATIENT
  Age: 60 Year
  Sex: Male

DRUGS (9)
  1. EFAVIRENZ [Suspect]
     Active Substance: EFAVIRENZ
     Indication: HIV infection
  2. NEVIRAPINE [Suspect]
     Active Substance: NEVIRAPINE
     Indication: HIV infection
  3. LAMIVUDINE [Suspect]
     Active Substance: LAMIVUDINE
     Indication: HIV infection
  4. ABACAVIR [Suspect]
     Active Substance: ABACAVIR
     Indication: HIV infection
  5. DOLUTEGRAVIR [Suspect]
     Active Substance: DOLUTEGRAVIR
     Indication: HIV infection
  6. ZIDOVUDINE [Suspect]
     Active Substance: ZIDOVUDINE
     Indication: HIV infection
  7. DIDANOSINE [Suspect]
     Active Substance: DIDANOSINE
     Indication: HIV infection
  8. NELFINAVIR [Suspect]
     Active Substance: NELFINAVIR
     Indication: HIV infection
  9. SAQUINAVIR [Suspect]
     Active Substance: SAQUINAVIR
     Indication: HIV infection

REACTIONS (7)
  - Exophthalmos [Unknown]
  - IIIrd nerve paresis [Unknown]
  - Lipodystrophy acquired [Unknown]
  - Strabismus [Unknown]
  - Eyelid ptosis [Unknown]
  - Eye disorder [Unknown]
  - Myopathy [Unknown]
